FAERS Safety Report 15989352 (Version 1)
Quarter: 2019Q1

REPORT INFORMATION
  Report Type: Spontaneous
  Country: US (occurrence: US)
  Receive Date: 20190221
  Receipt Date: 20190221
  Transmission Date: 20190418
  Serious: No
  Sender: FDA-Public Use
  Company Number: US-PFIZER INC-2019073888

PATIENT
  Age: 53 Year
  Sex: Female
  Weight: 127 kg

DRUGS (4)
  1. GABAPENTIN. [Suspect]
     Active Substance: GABAPENTIN
     Dosage: UNK, 3X/DAY
  2. GABAPENTIN. [Suspect]
     Active Substance: GABAPENTIN
     Dosage: UNK, 2X/DAY(TWICE A DAY THIS WEEK)(GABAPENTIN AT LUNCH AND BEDTIME)
  3. GABAPENTIN. [Suspect]
     Active Substance: GABAPENTIN
     Dosage: UNK
     Dates: start: 20181204
  4. LYRICA [Suspect]
     Active Substance: PREGABALIN
     Dosage: 150 MG, 1X/DAY(ONCE A DAY FOR THIS WEEK)(IN THE MORNING)

REACTIONS (2)
  - Weight decreased [Unknown]
  - Pain [Unknown]
